FAERS Safety Report 4380601-X (Version None)
Quarter: 2004Q2

REPORT INFORMATION
  Report Type: 
  Country: None (occurrence: None)
  Receive Date: 20040618
  Receipt Date: 20031126
  Transmission Date: 20050107
  Serious: Yes (Hospitalization)
  Sender: FDA-Public Use
  Company Number: GB-GLAXOSMITHKLINE-B0317588A

PATIENT
  Age: 66 Year
  Sex: Female

DRUGS (4)
  1. TOPOTECAN [Suspect]
     Indication: OVARIAN CANCER
     Dates: start: 20031110
  2. CYCLIZINE [Concomitant]
     Dates: start: 20031110
  3. CIPROFLOXACIN [Concomitant]
     Dates: start: 20031117, end: 20031124
  4. DOMPERIDONE [Concomitant]

REACTIONS (3)
  - JOINT SWELLING [None]
  - NEUROPATHY PERIPHERAL [None]
  - OEDEMA PERIPHERAL [None]
